FAERS Safety Report 10495775 (Version 1)
Quarter: 2014Q3

REPORT INFORMATION
  Report Type: Spontaneous
  Country: US (occurrence: None)
  Receive Date: 20140815
  Receipt Date: 20140815
  Transmission Date: 20150326
  Serious: Yes (Other)
  Sender: FDA-Public Use
  Company Number: ADR-2014-00121

PATIENT
  Age: 62 Year
  Sex: Female

DRUGS (2)
  1. BACLOFEN INTRATHECAL (2000 MCG/ML) [Suspect]
     Active Substance: BACLOFEN
     Indication: MUSCLE SPASTICITY
  2. ATIVAN [Suspect]
     Active Substance: LORAZEPAM

REACTIONS (6)
  - Muscle spasticity [None]
  - Mental status changes [None]
  - Hypotonia [None]
  - Medical device discomfort [None]
  - Pain [None]
  - Musculoskeletal stiffness [None]

NARRATIVE: CASE EVENT DATE: 20140116
